FAERS Safety Report 5698171-2 (Version None)
Quarter: 2008Q2

REPORT INFORMATION
  Report Type: 
  Country: None (occurrence: None)
  Receive Date: 20080403
  Receipt Date: 20080321
  Transmission Date: 20081010
  Serious: Yes (Death, Life-Threatening)
  Sender: FDA-Public Use
  Company Number: 000358

PATIENT
  Age: 23 Year
  Sex: Female

DRUGS (1)
  1. BUSULFEX [Suspect]
     Indication: STEM CELL TRANSPLANT
     Dosage: INTRAVENOUS
     Route: 042
     Dates: start: 20071003, end: 20071005

REACTIONS (7)
  - ACUTE GRAFT VERSUS HOST DISEASE [None]
  - ACUTE LYMPHOCYTIC LEUKAEMIA RECURRENT [None]
  - CANDIDA SEPSIS [None]
  - DIARRHOEA [None]
  - PNEUMONIA STAPHYLOCOCCAL [None]
  - TOXIC ENCEPHALOPATHY [None]
  - VENOOCCLUSIVE LIVER DISEASE [None]
